FAERS Safety Report 10874152 (Version 4)
Quarter: 2016Q2

REPORT INFORMATION
  Report Type: Spontaneous
  Country: US (occurrence: US)
  Receive Date: 20150227
  Receipt Date: 20160507
  Transmission Date: 20160815
  Serious: Yes (Death, Hospitalization, Other)
  Sender: FDA-Public Use
  Company Number: US-JNJFOC-20150216295

PATIENT
  Age: 69 Year
  Sex: Female

DRUGS (1)
  1. XARELTO [Suspect]
     Active Substance: RIVAROXABAN
     Indication: PRODUCT USED FOR UNKNOWN INDICATION
     Route: 048
     Dates: start: 20120829, end: 20130303

REACTIONS (4)
  - Renal haemorrhage [Unknown]
  - Gastrointestinal haemorrhage [Unknown]
  - Internal haemorrhage [Fatal]
  - Epistaxis [Unknown]

NARRATIVE: CASE EVENT DATE: 201303
